FAERS Safety Report 8398386-9 (Version None)
Quarter: 2012Q2

REPORT INFORMATION
  Report Type: 
  Country: None (occurrence: None)
  Receive Date: 20120531
  Receipt Date: 20110425
  Transmission Date: 20120825
  Serious: No
  Sender: FDA-Public Use
  Company Number: US-NOVEN-11US002335

PATIENT
  Age: 19 Year
  Sex: Female

DRUGS (2)
  1. DAYTRANA [Suspect]
     Indication: DYSLEXIA
  2. DAYTRANA [Suspect]
     Indication: ATTENTION DEFICIT/HYPERACTIVITY DISORDER
     Dosage: 10 MG, QD
     Route: 062
     Dates: start: 20090101

REACTIONS (4)
  - INCORRECT STORAGE OF DRUG [None]
  - NO ADVERSE EVENT [None]
  - OFF LABEL USE [None]
  - DRUG PRESCRIBING ERROR [None]
